FAERS Safety Report 20574841 (Version 1)
Quarter: 2022Q1

REPORT INFORMATION
  Report Type: Spontaneous
  Country: CN (occurrence: CN)
  Receive Date: 20220310
  Receipt Date: 20220310
  Transmission Date: 20220424
  Serious: Yes (Life-Threatening, Hospitalization)
  Sender: FDA-Public Use
  Company Number: CN-NOVARTISPH-NVSC2022CN055559

PATIENT
  Age: 76 Year
  Sex: Male
  Weight: 70 kg

DRUGS (2)
  1. SACUBITRIL\VALSARTAN [Suspect]
     Active Substance: SACUBITRIL\VALSARTAN
     Indication: Hypertension
     Dosage: 0.5 DOSAGE FORM, BID
     Route: 048
     Dates: start: 20190201, end: 20220307
  2. WARFARIN SODIUM [Concomitant]
     Active Substance: WARFARIN SODIUM
     Indication: Atrial fibrillation
     Dosage: 0.5 DOSAGE FORM, QD
     Route: 048
     Dates: start: 20190314, end: 20220306

REACTIONS (2)
  - Hyperkalaemia [Not Recovered/Not Resolved]
  - Upper gastrointestinal haemorrhage [Not Recovered/Not Resolved]

NARRATIVE: CASE EVENT DATE: 20220305
